FAERS Safety Report 25594492 (Version 1)
Quarter: 2025Q3

REPORT INFORMATION
  Report Type: Spontaneous
  Country: EU (occurrence: EU)
  Receive Date: 20250723
  Receipt Date: 20250723
  Transmission Date: 20251020
  Serious: Yes (Other)
  Sender: BAXTER
  Company Number: None

PATIENT
  Age: 19 Year
  Sex: Female
  Weight: 68 kg

DRUGS (4)
  1. PROPOFOL [Suspect]
     Active Substance: PROPOFOL
     Indication: Induction and maintenance of anaesthesia
     Route: 042
     Dates: start: 20250216, end: 20250216
  2. KETAMINE [Suspect]
     Active Substance: KETAMINE
     Indication: Induction and maintenance of anaesthesia
     Route: 042
     Dates: start: 20250216, end: 20250216
  3. LIDOCAINE HYDROCHLORIDE [Suspect]
     Active Substance: LIDOCAINE HYDROCHLORIDE
     Indication: Induction and maintenance of anaesthesia
     Route: 042
     Dates: start: 20250216, end: 20250216
  4. ROCURONIUM BROMIDE [Suspect]
     Active Substance: ROCURONIUM BROMIDE
     Indication: Induction of anaesthesia
     Route: 042
     Dates: start: 20250216, end: 20250216

REACTIONS (1)
  - Type I hypersensitivity [Recovered/Resolved]

NARRATIVE: CASE EVENT DATE: 20250216
